FAERS Safety Report 10205755 (Version 1)
Quarter: 2014Q2

REPORT INFORMATION
  Report Type: Spontaneous
  Country: LK (occurrence: LK)
  Receive Date: 20140530
  Receipt Date: 20140530
  Transmission Date: 20141212
  Serious: Yes (Other)
  Sender: FDA-Public Use
  Company Number: LK-BEH-2014042789

PATIENT
  Age: 44 Year
  Sex: Male

DRUGS (1)
  1. INTRAVENOUS IMMUNOGLOBULIN [Suspect]
     Indication: MILLER FISHER SYNDROME
     Dosage: TOTAL 180 G

REACTIONS (6)
  - Cerebral infarction [Recovering/Resolving]
  - Headache [Recovered/Resolved]
  - Speech disorder [Recovering/Resolving]
  - Convulsion [Recovered/Resolved]
  - Aphasia [Recovering/Resolving]
  - Hemianopia homonymous [Recovering/Resolving]
